FAERS Safety Report 23078163 (Version 1)
Quarter: 2023Q4

REPORT INFORMATION
  Report Type: Spontaneous
  Country: US (occurrence: US)
  Receive Date: 20231018
  Receipt Date: 20231018
  Transmission Date: 20240110
  Serious: No
  Sender: FDA-Public Use
  Company Number: US-ALVOGEN-2022088868

PATIENT
  Sex: Male
  Weight: 68.03 kg

DRUGS (3)
  1. RIVASTIGMINE [Suspect]
     Active Substance: RIVASTIGMINE
     Indication: Dementia
     Dosage: STRENGTH: 4.6 MG/24 HOURS
     Dates: start: 202207, end: 202212
  2. RIVASTIGMINE [Suspect]
     Active Substance: RIVASTIGMINE
     Indication: Dementia
     Dosage: STRENGTH: 9.5 MG/24 HOURS?EXPIRATION DATE: 31-JAN-2024
     Dates: start: 20221216
  3. LIPITOR [Concomitant]
     Active Substance: ATORVASTATIN CALCIUM
     Indication: Hypercholesterolaemia

REACTIONS (4)
  - Feeling abnormal [Unknown]
  - Dizziness [Unknown]
  - Product quality issue [Unknown]
  - Product dose omission issue [Unknown]
